FAERS Safety Report 21126879 (Version 3)
Quarter: 2022Q3

REPORT INFORMATION
  Report Type: Spontaneous
  Country: US (occurrence: US)
  Receive Date: 20220725
  Receipt Date: 20220930
  Transmission Date: 20221027
  Serious: No
  Sender: FDA-Public Use
  Company Number: US-BIOGEN-2022BI01140633

PATIENT
  Age: 54 Year
  Sex: Female

DRUGS (1)
  1. SPINRAZA [Suspect]
     Active Substance: NUSINERSEN
     Indication: Spinal muscular atrophy
     Dosage: RECEIVED 9 MAINTENANCE DOSES BEYOND THE INITIAL 4 LOADING DOSE
     Route: 050

REACTIONS (5)
  - Dizziness [Not Recovered/Not Resolved]
  - Cerebrospinal fluid leakage [Unknown]
  - Procedural nausea [Recovered/Resolved]
  - Procedural complication [Unknown]
  - Headache [Not Recovered/Not Resolved]

NARRATIVE: CASE EVENT DATE: 20220718
